FAERS Safety Report 25961175 (Version 1)
Quarter: 2025Q4

REPORT INFORMATION
  Report Type: Spontaneous
  Country: US (occurrence: US)
  Receive Date: 20251027
  Receipt Date: 20251027
  Transmission Date: 20260117
  Serious: No
  Sender: BAUSCH AND LOMB
  Company Number: US-BAUSCHBL-2025BNL030495

PATIENT
  Sex: Female

DRUGS (3)
  1. ALAWAY [Suspect]
     Active Substance: KETOTIFEN FUMARATE
     Indication: Seasonal allergy
     Dosage: 9 YEARS OR LONGER
     Route: 047
  2. LORATADINE [Concomitant]
     Active Substance: LORATADINE
  3. NAPHACON [Concomitant]
     Indication: Product used for unknown indication
     Route: 047

REACTIONS (4)
  - Eye irritation [Unknown]
  - Fungal skin infection [Unknown]
  - Expired product administered [Unknown]
  - Inappropriate schedule of product administration [Unknown]
